FAERS Safety Report 16049084 (Version 3)
Quarter: 2020Q3

REPORT INFORMATION
  Report Type: Spontaneous
  Country: ES (occurrence: ES)
  Receive Date: 20190307
  Receipt Date: 20190617
  Transmission Date: 20201104
  Serious: Yes (Hospitalization)
  Sender: FDA-Public Use
  Company Number: PHHY2019ES046226

PATIENT
  Age: 46 Year
  Sex: Female

DRUGS (17)
  1. BOTOX [Suspect]
     Active Substance: ONABOTULINUMTOXINA
     Indication: MIGRAINE
     Dosage: 300 U, UNK (SINGLE (PER SESSION))
     Route: 065
  2. LEVOTHROID [Concomitant]
     Active Substance: LEVOTHYROXINE SODIUM
     Indication: HYPOTHYROIDISM
     Dosage: UNK
     Route: 065
  3. FLUNARIZINE [Suspect]
     Active Substance: FLUNARIZINE
     Indication: MIGRAINE
     Dosage: UNK
     Route: 048
  4. TOPIRAMATE. [Suspect]
     Active Substance: TOPIRAMATE
     Indication: MIGRAINE
     Dosage: UNK
     Route: 048
  5. CANDESARTAN CILEXETIL. [Suspect]
     Active Substance: CANDESARTAN CILEXETIL
     Indication: MIGRAINE
     Dosage: UNK
     Route: 065
  6. ETORICOXIB. [Suspect]
     Active Substance: ETORICOXIB
     Indication: MIGRAINE
     Dosage: UNK
     Route: 065
  7. VALPROATE [Suspect]
     Active Substance: VALPROIC ACID
     Indication: MIGRAINE
     Dosage: UNK
     Route: 048
  8. ELETRIPTAN. [Suspect]
     Active Substance: ELETRIPTAN
     Indication: MIGRAINE
     Dosage: UNK
     Route: 065
  9. BOTOX [Suspect]
     Active Substance: ONABOTULINUMTOXINA
     Dosage: UNK (SINGLE)
     Route: 030
  10. LAMOTRIGINE. [Suspect]
     Active Substance: LAMOTRIGINE
     Indication: MIGRAINE
     Dosage: UNK
     Route: 048
  11. DILTIAZEM. [Suspect]
     Active Substance: DILTIAZEM
     Indication: MIGRAINE
     Dosage: UNK
     Route: 048
  12. PREGABALIN. [Suspect]
     Active Substance: PREGABALIN
     Indication: MIGRAINE
     Dosage: UNK
     Route: 065
  13. ZONISAMIDE. [Suspect]
     Active Substance: ZONISAMIDE
     Indication: MIGRAINE
     Dosage: UNK
     Route: 048
  14. ESCITALOPRAM OXALATE. [Suspect]
     Active Substance: ESCITALOPRAM OXALATE
     Indication: MIGRAINE
     Dosage: UNK
     Route: 048
  15. NADOLOL. [Suspect]
     Active Substance: NADOLOL
     Indication: MIGRAINE
     Dosage: UNK
     Route: 048
  16. AMITRIPTYLINE [Suspect]
     Active Substance: AMITRIPTYLINE
     Indication: MIGRAINE
     Dosage: UNK
     Route: 048
  17. LEVOMEPROMAZINE [Suspect]
     Active Substance: LEVOMEPROMAZINE
     Indication: MIGRAINE
     Dosage: UNK
     Route: 048

REACTIONS (7)
  - Drug eruption [Unknown]
  - Withdrawal syndrome [Unknown]
  - Product use in unapproved indication [Unknown]
  - Somnolence [Unknown]
  - Therapeutic product effect incomplete [Unknown]
  - Weight decreased [Unknown]
  - Drug ineffective [Unknown]
